FAERS Safety Report 6972149-0 (Version None)
Quarter: 2010Q3

REPORT INFORMATION
  Report Type: 
  Country: None (occurrence: None)
  Receive Date: 20100909
  Receipt Date: 20100901
  Transmission Date: 20110219
  Serious: No
  Sender: FDA-Public Use
  Company Number: US-BIOGENIDEC-2010BI030904

PATIENT
  Sex: Female

DRUGS (2)
  1. TYSABRI [Suspect]
     Indication: MULTIPLE SCLEROSIS
     Route: 042
     Dates: start: 20100708
  2. AVONEX [Concomitant]
     Indication: MULTIPLE SCLEROSIS
     Route: 030

REACTIONS (7)
  - DECREASED APPETITE [None]
  - DEPRESSION [None]
  - FATIGUE [None]
  - HEADACHE [None]
  - LOSS OF CONTROL OF LEGS [None]
  - MEMORY IMPAIRMENT [None]
  - NAUSEA [None]
